FAERS Safety Report 11757099 (Version 1)
Quarter: 2015Q4

REPORT INFORMATION
  Report Type: Spontaneous
  Country: US (occurrence: None)
  Receive Date: 20151119
  Receipt Date: 20151119
  Transmission Date: 20160304
  Serious: Yes (Death)
  Sender: FDA-Public Use
  Company Number: None

PATIENT
  Age: 53 Year
  Sex: Male
  Weight: 104 kg

DRUGS (9)
  1. BENAZEPRIL [Suspect]
     Active Substance: BENAZEPRIL HYDROCHLORIDE
     Indication: HYPERTENSION
     Dosage: 1 PILL
     Route: 048
  2. AMLODIPINE [Concomitant]
     Active Substance: AMLODIPINE BESYLATE
  3. LANTHANUM [Concomitant]
     Active Substance: LANTHANUM
  4. CINACALCET [Concomitant]
     Active Substance: CINACALCET
  5. HYDRALAZINE [Concomitant]
     Active Substance: HYDRALAZINE HYDROCHLORIDE
  6. BENAZEPRIL [Suspect]
     Active Substance: BENAZEPRIL HYDROCHLORIDE
     Indication: CARDIAC FAILURE CONGESTIVE
     Dosage: 1 PILL
     Route: 048
  7. BENAZEPRIL [Suspect]
     Active Substance: BENAZEPRIL HYDROCHLORIDE
     Indication: DIABETES MELLITUS
     Dosage: 1 PILL
     Route: 048
  8. CLONIDINE. [Concomitant]
     Active Substance: CLONIDINE
  9. SEVELAMER (RENVELA) [Concomitant]

REACTIONS (6)
  - Stridor [None]
  - Hypoxic-ischaemic encephalopathy [None]
  - Cardio-respiratory arrest [None]
  - Pharyngeal oedema [None]
  - Swollen tongue [None]
  - Pneumothorax [None]

NARRATIVE: CASE EVENT DATE: 20150430
